FAERS Safety Report 6750936-1 (Version None)
Quarter: 2010Q2

REPORT INFORMATION
  Report Type: 
  Country: None (occurrence: None)
  Receive Date: 20100602
  Receipt Date: 20100525
  Transmission Date: 20101027
  Serious: Yes (Hospitalization)
  Sender: FDA-Public Use
  Company Number: PHHY2010US34116

PATIENT
  Sex: Male
  Weight: 76.55 kg

DRUGS (6)
  1. EXJADE [Suspect]
     Indication: IRON METABOLISM DISORDER
     Dosage: 1000 MG DAILY
     Route: 048
     Dates: start: 20100303
  2. ARICEPT [Concomitant]
     Dosage: UNK
  3. COREG [Concomitant]
  4. AVODART [Concomitant]
  5. LISINOPRIL [Concomitant]
  6. LASIX [Concomitant]

REACTIONS (1)
  - ANAEMIA [None]
